FAERS Safety Report 13998393 (Version 2)
Quarter: 2017Q4

REPORT INFORMATION
  Report Type: Spontaneous
  Country: BR (occurrence: BR)
  Receive Date: 20170922
  Receipt Date: 20171206
  Transmission Date: 20180321
  Serious: Yes (Other)
  Sender: FDA-Public Use
  Company Number: BR-ABBVIE-17P-020-2110414-00

PATIENT
  Age: 2 Year
  Sex: Male
  Weight: 14.5 kg

DRUGS (6)
  1. PREDNISOLONE. [Concomitant]
     Active Substance: PREDNISOLONE
     Indication: ASTHMA
     Route: 048
     Dates: start: 20170912
  2. KLARICID [Suspect]
     Active Substance: CLARITHROMYCIN
     Indication: PNEUMONIA
     Route: 048
     Dates: start: 20170915
  3. SALINE [Concomitant]
     Active Substance: SODIUM CHLORIDE
     Indication: ASTHMA
     Route: 055
     Dates: start: 20170915, end: 20170916
  4. SALINE [Concomitant]
     Active Substance: SODIUM CHLORIDE
     Route: 055
     Dates: start: 20170917
  5. KLARICID [Suspect]
     Active Substance: CLARITHROMYCIN
     Indication: OROPHARYNGEAL PAIN
     Dosage: DAILY DOSE: 4 ML (2 ML ONCE IN 12 HOUR), ADMINISTRATED WITH YOGURT
     Route: 048
     Dates: end: 20171127
  6. AEROLIN [Concomitant]
     Active Substance: ALBUTEROL
     Indication: ASTHMATIC CRISIS
     Route: 055
     Dates: start: 20170915

REACTIONS (6)
  - Abnormal behaviour [Recovered/Resolved]
  - Haematemesis [Recovered/Resolved]
  - Vomiting [Recovered/Resolved]
  - Liquid product physical issue [Recovered/Resolved]
  - Crying [Recovered/Resolved]
  - Refusal of treatment by patient [Recovered/Resolved]

NARRATIVE: CASE EVENT DATE: 20170916
